APPROVED DRUG PRODUCT: VANSIL
Active Ingredient: OXAMNIQUINE
Strength: 250MG
Dosage Form/Route: CAPSULE;ORAL
Application: N018069 | Product #001
Applicant: PFIZER LABORATORIES DIV PFIZER INC
Approved: Approved Prior to Jan 1, 1982 | RLD: No | RS: No | Type: DISCN